FAERS Safety Report 6255777-X (Version None)
Quarter: 2009Q3

REPORT INFORMATION
  Report Type: 
  Country: None (occurrence: None)
  Receive Date: 20090702
  Receipt Date: 20090629
  Transmission Date: 20100115
  Serious: Yes (Other)
  Sender: FDA-Public Use
  Company Number: US-JNJCH-2009017818

PATIENT
  Age: 37 Year
  Sex: Male
  Weight: 63.5 kg

DRUGS (1)
  1. LUBRIDERM DAILY MOISTURE [Suspect]
     Indication: DRY SKIN
     Dosage: TEXT:A LITTLE BIT ON FINGER TIPS ONCE
     Route: 061
     Dates: start: 20090628, end: 20090628

REACTIONS (5)
  - APPLICATION SITE ERYTHEMA [None]
  - APPLICATION SITE IRRITATION [None]
  - APPLICATION SITE PRURITUS [None]
  - EYE SWELLING [None]
  - SWELLING FACE [None]
